FAERS Safety Report 11149398 (Version 1)
Quarter: 2015Q2

REPORT INFORMATION
  Report Type: Spontaneous
  Country: US (occurrence: US)
  Receive Date: 20150529
  Receipt Date: 20150529
  Transmission Date: 20150821
  Serious: Yes (Life-Threatening, Hospitalization)
  Sender: FDA-Public Use
  Company Number: US-IMPAX LABORATORIES, INC-2015-IPXL-00580

PATIENT
  Age: 63 Year
  Sex: Male

DRUGS (2)
  1. FLUDROCORTISONE ACETATE. [Suspect]
     Active Substance: FLUDROCORTISONE ACETATE
     Indication: BLOOD PRESSURE ORTHOSTATIC
     Dosage: 0.3 MG, BID
     Route: 065
  2. FLUDROCORTISONE ACETATE. [Suspect]
     Active Substance: FLUDROCORTISONE ACETATE
     Dosage: 3 G, DAILY
     Route: 065

REACTIONS (4)
  - Hypokalaemia [Unknown]
  - Metabolic alkalosis [Recovered/Resolved]
  - Hypernatraemia [Unknown]
  - Hypocalcaemia [Recovered/Resolved]
